FAERS Safety Report 9469417 (Version 1)
Quarter: 2013Q3

REPORT INFORMATION
  Report Type: Spontaneous
  Country: TR (occurrence: TR)
  Receive Date: 20130822
  Receipt Date: 20130822
  Transmission Date: 20140515
  Serious: Yes (Other)
  Sender: FDA-Public Use
  Company Number: TR-AMGEN-TURSP2013058612

PATIENT
  Age: 53 Year
  Sex: Female

DRUGS (5)
  1. ENBREL [Suspect]
     Indication: PRODUCT USED FOR UNKNOWN INDICATION
     Dosage: 50 MG  EVERY 2 WEEKS
     Route: 065
     Dates: start: 20130815
  2. METHOTREXATE SODIUM [Concomitant]
     Dosage: UNK
     Route: 048
  3. SULPERAZON [Concomitant]
     Dosage: 2 X 2 DAILY
     Route: 048
  4. DICLOFENAC [Concomitant]
     Dosage: UNK
  5. CONCOR [Concomitant]
     Indication: HYPERTENSION
     Dosage: UNK

REACTIONS (5)
  - Nausea [Unknown]
  - Tremor [Unknown]
  - Pyrexia [Unknown]
  - Blood pressure increased [Unknown]
  - Urinary tract infection [Unknown]
